FAERS Safety Report 10484183 (Version 1)
Quarter: 2014Q3

REPORT INFORMATION
  Report Type: Spontaneous
  Country: HR (occurrence: HR)
  Receive Date: 20140930
  Receipt Date: 20140930
  Transmission Date: 20150326
  Serious: Yes (Death, Hospitalization)
  Sender: FDA-Public Use
  Company Number: PHHY2014HR123603

PATIENT
  Age: 45 Year
  Sex: Female

DRUGS (4)
  1. IRINOTECAN [Suspect]
     Active Substance: IRINOTECAN
     Indication: COLORECTAL CANCER METASTATIC
     Dosage: 180 MG/M2, UNK
  2. LEUCOVORIN CALCIUM. [Suspect]
     Active Substance: LEUCOVORIN CALCIUM
     Indication: COLORECTAL CANCER METASTATIC
     Dosage: 400 MG/M2, UNK
     Route: 041
  3. 5-FLUOROURACIL [Suspect]
     Active Substance: FLUOROURACIL
     Dosage: 2400 MG/M2, UNK
     Route: 041
  4. 5-FLUOROURACIL [Suspect]
     Active Substance: FLUOROURACIL
     Indication: COLORECTAL CANCER METASTATIC
     Dosage: 400 MG/M2, UNK
     Route: 042

REACTIONS (9)
  - Brain oedema [Unknown]
  - Enlarged cerebral perivascular spaces [Unknown]
  - Subarachnoid haemorrhage [Unknown]
  - Posterior reversible encephalopathy syndrome [Fatal]
  - Generalised tonic-clonic seizure [Fatal]
  - Headache [Fatal]
  - Coma [Unknown]
  - Metastases to lung [Unknown]
  - Metastases to liver [Unknown]
